FAERS Safety Report 15021152 (Version 6)
Quarter: 2018Q4

REPORT INFORMATION
  Report Type: Spontaneous
  Country: PL (occurrence: PL)
  Receive Date: 20180618
  Receipt Date: 20181113
  Transmission Date: 20190204
  Serious: Yes (Hospitalization)
  Sender: FDA-Public Use
  Company Number: PL-MYLANLABS-2018M1041447

PATIENT
  Age: 55 Year
  Sex: Female

DRUGS (3)
  1. DICLOFENAC [Suspect]
     Active Substance: DICLOFENAC
     Indication: PRODUCT USED FOR UNKNOWN INDICATION
     Dosage: 750 MG, TOTAL
     Route: 065
  2. TIZANIDINE. [Suspect]
     Active Substance: TIZANIDINE
     Dosage: 30 DF, TOTAL (30 TABLETS OF 4 MG EACH; IN TOTAL)
     Route: 065
  3. TIZANIDINE. [Suspect]
     Active Substance: TIZANIDINE
     Indication: PRODUCT USED FOR UNKNOWN INDICATION
     Dosage: 120 MG, TOTAL, 30 DF (4 MG EACH), 120 MG
     Route: 065

REACTIONS (10)
  - Toxicity to various agents [Unknown]
  - Myocardial infarction [Recovered/Resolved]
  - Somnolence [Unknown]
  - Acute myocardial infarction [Recovered/Resolved]
  - Overdose [Unknown]
  - Low density lipoprotein increased [Unknown]
  - Blood cholesterol increased [Unknown]
  - Electrocardiogram ST segment abnormal [Unknown]
  - Troponin increased [Unknown]
  - Suicide attempt [Unknown]
